FAERS Safety Report 6874688-X (Version None)
Quarter: 2010Q3

REPORT INFORMATION
  Report Type: 
  Country: None (occurrence: None)
  Receive Date: 20100722
  Receipt Date: 20100713
  Transmission Date: 20110219
  Serious: Yes (Hospitalization)
  Sender: FDA-Public Use
  Company Number: B0666148A

PATIENT
  Age: 35 Year
  Sex: Female

DRUGS (5)
  1. LAMIVUDINE [Suspect]
     Indication: HIV TEST POSITIVE
  2. STAVUDINE [Suspect]
     Indication: HIV TEST POSITIVE
  3. EFAVIRENZ [Suspect]
     Indication: HIV TEST POSITIVE
  4. T-20 (FORMULATION UNKNOWN) (T-20) [Suspect]
     Indication: HIV TEST POSITIVE
  5. LOPINAVIR AND RITONAVIR [Suspect]
     Indication: HIV TEST POSITIVE

REACTIONS (22)
  - ATAXIA [None]
  - CATARACT [None]
  - CHORIORETINAL SCAR [None]
  - CYTOMEGALOVIRUS VIRAEMIA [None]
  - EYE DISORDER [None]
  - EYE INFLAMMATION [None]
  - FIBROSIS [None]
  - FUNGAL TEST POSITIVE [None]
  - GRANULOMA [None]
  - HEADACHE [None]
  - HISTOPLASMOSIS [None]
  - IMMUNE RECONSTITUTION SYNDROME [None]
  - INTRAOCULAR PRESSURE INCREASED [None]
  - LIVER FUNCTION TEST ABNORMAL [None]
  - NEUROLOGICAL SYMPTOM [None]
  - PARAESTHESIA [None]
  - RASH PUSTULAR [None]
  - RETINAL DISORDER [None]
  - UVEITIS [None]
  - VISION BLURRED [None]
  - VISUAL ACUITY REDUCED [None]
  - VITRITIS [None]
